FAERS Safety Report 6359219-5 (Version None)
Quarter: 2009Q3

REPORT INFORMATION
  Report Type: 
  Country: None (occurrence: None)
  Receive Date: 20090917
  Receipt Date: 20090908
  Transmission Date: 20100115
  Serious: Yes (Hospitalization, Other)
  Sender: FDA-Public Use
  Company Number: PHHY2009JP32739

PATIENT
  Age: 58 Year
  Sex: Male

DRUGS (6)
  1. COMTAN [Suspect]
     Indication: DRUG EFFECT DECREASED
     Dosage: UNK
     Route: 048
     Dates: start: 20070101
  2. TRIHEXYPHENIDYL HCL [Concomitant]
     Indication: PARKINSON'S DISEASE
     Route: 048
  3. TOFRANIL [Concomitant]
     Indication: DEPRESSION
     Route: 048
  4. PAROXETINE HCL [Concomitant]
     Indication: DEPRESSION
     Route: 048
  5. CABERGOLINE [Concomitant]
     Indication: DRUG EFFECT DECREASED
     Dosage: UNK
     Route: 048
     Dates: start: 20040101
  6. PRAMIPEXOLE DIHYDROCHLORIDE [Concomitant]
     Indication: PARKINSON'S DISEASE
     Route: 048

REACTIONS (4)
  - DYSKINESIA [None]
  - DYSPHAGIA [None]
  - POSTURE ABNORMAL [None]
  - SALIVARY HYPERSECRETION [None]
